FAERS Safety Report 7543715-9 (Version None)
Quarter: 2011Q2

REPORT INFORMATION
  Report Type: 
  Country: None (occurrence: None)
  Receive Date: 20110613
  Receipt Date: 20030722
  Transmission Date: 20111010
  Serious: Yes (Death, Other)
  Sender: FDA-Public Use
  Company Number: PHHO2003CA01016

PATIENT
  Sex: Male

DRUGS (1)
  1. CLOZARIL [Suspect]
     Dosage: 525 MG, QD
     Dates: start: 19921102

REACTIONS (7)
  - ALCOHOL ABUSE [None]
  - PSYCHOTIC DISORDER [None]
  - CELLULITIS [None]
  - DEATH [None]
  - ANXIETY [None]
  - ASPIRATION [None]
  - AGGRESSION [None]
